FAERS Safety Report 16973987 (Version 1)
Quarter: 2019Q4

REPORT INFORMATION
  Report Type: Spontaneous
  Country: BR (occurrence: BR)
  Receive Date: 20191030
  Receipt Date: 20191030
  Transmission Date: 20200122
  Serious: Yes (Death, Life-Threatening, Hospitalization)
  Sender: FDA-Public Use
  Company Number: BR-MYLANLABS-2019M1101295

PATIENT
  Age: 63 Year
  Sex: Male

DRUGS (3)
  1. PIPERACILLIN/TAZOBACTAM [Suspect]
     Active Substance: PIPERACILLIN SODIUM\TAZOBACTAM SODIUM
     Indication: SEPSIS
     Dosage: UNK
     Route: 065
  2. LEUCOVORIN                         /00566701/ [Concomitant]
     Active Substance: LEUCOVORIN
     Indication: ADENOCARCINOMA OF COLON
     Dosage: UNK
     Route: 065
  3. 5-FLUOROURACIL                     /00098801/ [Concomitant]
     Active Substance: FLUOROURACIL
     Indication: ADENOCARCINOMA OF COLON
     Dosage: UNK
     Route: 065

REACTIONS (14)
  - Renal impairment [Fatal]
  - Gastrointestinal bacterial infection [Fatal]
  - Respiratory distress [Unknown]
  - Areflexia [Unknown]
  - Speech disorder [Unknown]
  - Cardiac arrest [Unknown]
  - Agitation [Unknown]
  - Intestinal obstruction [Fatal]
  - Ophthalmoplegia [Unknown]
  - Botulism [Fatal]
  - Bacterial toxaemia [Fatal]
  - Quadriparesis [Unknown]
  - Dysarthria [Unknown]
  - Hypoxia [Unknown]
